FAERS Safety Report 11584755 (Version 1)
Quarter: 2015Q4

REPORT INFORMATION
  Report Type: Spontaneous
  Country: US (occurrence: US)
  Receive Date: 20151001
  Receipt Date: 20151001
  Transmission Date: 20160304
  Serious: No
  Sender: FDA-Public Use
  Company Number: US-JNJFOC-20150820434

PATIENT
  Age: 84 Year
  Sex: Male
  Weight: 84.82 kg

DRUGS (9)
  1. TROSPIUM [Concomitant]
     Active Substance: TROSPIUM
     Indication: BLADDER DISORDER
     Route: 065
  2. FLUNISOLIDE. [Concomitant]
     Active Substance: FLUNISOLIDE
     Indication: MULTIPLE ALLERGIES
     Route: 065
  3. LOSARTAN. [Concomitant]
     Active Substance: LOSARTAN
     Indication: BLOOD PRESSURE MEASUREMENT
     Route: 065
  4. CITRACAL [Concomitant]
     Active Substance: CALCIUM CITRATE
     Indication: CALCIUM DEFICIENCY
     Route: 065
  5. PREDNISONE. [Concomitant]
     Active Substance: PREDNISONE
     Indication: PROSTATE CANCER
     Route: 065
  6. OMEPRAZOLE. [Concomitant]
     Active Substance: OMEPRAZOLE
     Indication: DYSPEPSIA
     Route: 065
  7. CENTRUM (MINERALS NOS, VITAMINS NOS) [Concomitant]
     Indication: VITAMIN SUPPLEMENTATION
     Route: 065
  8. ZYTIGA [Suspect]
     Active Substance: ABIRATERONE ACETATE
     Indication: PROSTATE CANCER
     Route: 048
     Dates: start: 20140716
  9. PRAVASTATIN [Concomitant]
     Active Substance: PRAVASTATIN\PRAVASTATIN SODIUM
     Indication: BLOOD CHOLESTEROL
     Route: 065

REACTIONS (4)
  - Eye swelling [Not Recovered/Not Resolved]
  - Erythema [Not Recovered/Not Resolved]
  - Arthropod bite [Recovered/Resolved]
  - Calcium deficiency [Recovered/Resolved]

NARRATIVE: CASE EVENT DATE: 2014
